FAERS Safety Report 10595267 (Version 1)
Quarter: 2014Q4

REPORT INFORMATION
  Report Type: Spontaneous
  Country: KR (occurrence: None)
  Receive Date: 20141118
  Receipt Date: 20141118
  Transmission Date: 20150529
  Serious: Yes (Other)
  Sender: FDA-Public Use
  Company Number: COR_00150_2014

PATIENT
  Age: 7 Year
  Sex: Female

DRUGS (3)
  1. CARBOPLATIN. [Suspect]
     Active Substance: CARBOPLATIN
     Indication: LUNG NEOPLASM MALIGNANT
  2. ETOPOSIDE. [Suspect]
     Active Substance: ETOPOSIDE
     Indication: LUNG NEOPLASM MALIGNANT
  3. MELPHALAN [Suspect]
     Active Substance: MELPHALAN
     Indication: LUNG NEOPLASM MALIGNANT

REACTIONS (2)
  - Pneumonia [None]
  - Thyroid cancer [None]
